FAERS Safety Report 10160210 (Version 1)
Quarter: 2014Q2

REPORT INFORMATION
  Report Type: Spontaneous
  Country: IT (occurrence: IT)
  Receive Date: 20140508
  Receipt Date: 20140508
  Transmission Date: 20141212
  Serious: Yes (Hospitalization)
  Sender: FDA-Public Use
  Company Number: IT-BAYER-2014-066658

PATIENT
  Age: 79 Year
  Sex: Male

DRUGS (10)
  1. CARDIOASPIRIN [Suspect]
     Indication: CORONARY ARTERY DISEASE
     Dosage: DAILY DOSE 100 MG
     Route: 048
     Dates: end: 20140321
  2. MEPRAL [Concomitant]
     Dosage: DAILY DOSE 40 MG
     Route: 048
  3. TAREG [Concomitant]
     Dosage: DAILY DOSE 20 MG
     Route: 048
  4. CARDICOR [Concomitant]
     Dosage: DAILY DOSE .5 DF
     Route: 048
  5. LASIX [Concomitant]
     Dosage: DAILY DOSE 50 MG
     Route: 048
  6. EPINITRIL [Concomitant]
  7. LEDERFOLIN [Concomitant]
     Dosage: DAILY DOSE 15 MG
     Route: 048
  8. LUVION [Concomitant]
     Dosage: DAILY DOSE 50 MG
     Route: 048
  9. ONBREZ [Concomitant]
  10. CLEXANE [Concomitant]

REACTIONS (1)
  - Anaemia [Recovering/Resolving]
